FAERS Safety Report 18936706 (Version 11)
Quarter: 2023Q1

REPORT INFORMATION
  Report Type: Spontaneous
  Country: US (occurrence: US)
  Receive Date: 20210224
  Receipt Date: 20230109
  Transmission Date: 20230418
  Serious: Yes (Other)
  Sender: FDA-Public Use
  Company Number: US-BIOGEN-2021BI00979423

PATIENT
  Age: 40 Year
  Sex: Female

DRUGS (19)
  1. VUMERITY [Suspect]
     Active Substance: DIROXIMEL FUMARATE
     Indication: Multiple sclerosis
     Dosage: 2 CAPSULES
     Route: 050
     Dates: start: 20210123
  2. VUMERITY [Suspect]
     Active Substance: DIROXIMEL FUMARATE
     Route: 050
     Dates: start: 20210123
  3. VUMERITY [Suspect]
     Active Substance: DIROXIMEL FUMARATE
     Route: 050
  4. VUMERITY [Suspect]
     Active Substance: DIROXIMEL FUMARATE
     Dosage: TAKE 2 CAPSULES (462MG) BY MOUTH TWICE DAILY
     Route: 050
  5. VUMERITY [Suspect]
     Active Substance: DIROXIMEL FUMARATE
     Route: 050
  6. VUMERITY [Suspect]
     Active Substance: DIROXIMEL FUMARATE
     Route: 050
  7. VUMERITY [Suspect]
     Active Substance: DIROXIMEL FUMARATE
     Route: 050
  8. VUMERITY [Suspect]
     Active Substance: DIROXIMEL FUMARATE
     Route: 050
  9. VUMERITY [Suspect]
     Active Substance: DIROXIMEL FUMARATE
     Route: 050
  10. VUMERITY [Suspect]
     Active Substance: DIROXIMEL FUMARATE
     Route: 050
     Dates: start: 20210430
  11. VUMERITY [Suspect]
     Active Substance: DIROXIMEL FUMARATE
     Route: 050
     Dates: start: 20210430
  12. VUMERITY [Suspect]
     Active Substance: DIROXIMEL FUMARATE
     Dosage: 231 MG 2 CAPSULES IN THE MORNING, 231 MG ONE CAPSULE IN THE EVENING
     Route: 050
  13. MODERNA COVID-19 VACCINE [Suspect]
     Active Substance: ELASOMERAN
     Indication: COVID-19 prophylaxis
     Route: 050
     Dates: start: 202110
  14. GABAPENTIN [Concomitant]
     Active Substance: GABAPENTIN
     Indication: Product used for unknown indication
     Route: 050
  15. SINGULAIR [Concomitant]
     Active Substance: MONTELUKAST SODIUM
     Indication: Product used for unknown indication
     Route: 050
  16. ATORVASTATIN CALCIUM [Concomitant]
     Active Substance: ATORVASTATIN CALCIUM
     Indication: Product used for unknown indication
     Route: 050
  17. VITAMIN D3 [Concomitant]
     Active Substance: CHOLECALCIFEROL
     Indication: Product used for unknown indication
     Route: 050
  18. VITAMIN E [Concomitant]
     Active Substance: .ALPHA.-TOCOPHEROL
     Indication: Product used for unknown indication
     Route: 050
  19. FLONASE ALLERGY RELIEF [Concomitant]
     Active Substance: FLUTICASONE PROPIONATE
     Indication: Product used for unknown indication
     Route: 050

REACTIONS (6)
  - Anaphylactic shock [Unknown]
  - Anaphylactic reaction [Not Recovered/Not Resolved]
  - Hypersensitivity [Recovered/Resolved]
  - Vertigo [Not Recovered/Not Resolved]
  - Multiple sclerosis [Not Recovered/Not Resolved]
  - Immunisation reaction [Unknown]

NARRATIVE: CASE EVENT DATE: 20210123
